FAERS Safety Report 10215930 (Version 2)
Quarter: 2014Q3

REPORT INFORMATION
  Report Type: Report from Study
  Country: FR (occurrence: None)
  Receive Date: 20140602
  Receipt Date: 20140707
  Transmission Date: 20150326
  Serious: Yes (Hospitalization)
  Sender: FDA-Public Use
  Company Number: 2014-FR-003909

PATIENT
  Age: 21 Year
  Sex: Male

DRUGS (3)
  1. XYREM [Suspect]
     Active Substance: SODIUM OXYBATE
     Indication: CATAPLEXY
     Route: 048
     Dates: start: 20131223, end: 20140115
  2. MODAFINIL MYLAN (MODAFINIL) [Concomitant]
  3. XYREM [Suspect]
     Active Substance: SODIUM OXYBATE
     Indication: NARCOLEPSY
     Route: 048
     Dates: start: 20131223, end: 20140115

REACTIONS (6)
  - Irritability [None]
  - Emotional disorder [None]
  - Vomiting [None]
  - Somnolence [None]
  - Automatism [None]
  - Personality change [None]

NARRATIVE: CASE EVENT DATE: 201402
